FAERS Safety Report 11346407 (Version 1)
Quarter: 2015Q3

REPORT INFORMATION
  Report Type: Spontaneous
  Country: US (occurrence: US)
  Receive Date: 20150803
  Receipt Date: 20150803
  Transmission Date: 20151125
  Serious: No
  Sender: FDA-Public Use
  Company Number: US-ELI_LILLY_AND_COMPANY-US201008004430

PATIENT
  Sex: Male

DRUGS (2)
  1. ZYPREXA ZYDIS [Suspect]
     Active Substance: OLANZAPINE
     Dosage: 40 MG, DAILY (1/D)
     Route: 048
     Dates: start: 200602
  2. ZYPREXA ZYDIS [Suspect]
     Active Substance: OLANZAPINE
     Dosage: 30 MG, DAILY (1/D)
     Route: 048
     Dates: start: 200808

REACTIONS (4)
  - Diabetes mellitus [Unknown]
  - Weight increased [Unknown]
  - Prescribed overdose [Unknown]
  - Erectile dysfunction [Unknown]
